FAERS Safety Report 7135667-0 (Version None)
Quarter: 2010Q4

REPORT INFORMATION
  Report Type: 
  Country: None (occurrence: None)
  Receive Date: 20101203
  Receipt Date: 20080513
  Transmission Date: 20110411
  Serious: Yes (Death)
  Sender: FDA-Public Use
  Company Number: NL-ROCHE-745621

PATIENT

DRUGS (1)
  1. AVASTIN [Suspect]
     Dosage: DOSE, FORM AND FREQUENCY NOT PROVIDED.
     Route: 042

REACTIONS (1)
  - DEATH [None]
